FAERS Safety Report 7491373-4 (Version None)
Quarter: 2011Q2

REPORT INFORMATION
  Report Type: 
  Country: None (occurrence: None)
  Receive Date: 20110519
  Receipt Date: 20110505
  Transmission Date: 20111010
  Serious: Yes (Hospitalization)
  Sender: FDA-Public Use
  Company Number: PHHY2010MX48630

PATIENT
  Age: 53 Year
  Sex: Female

DRUGS (2)
  1. ZOLEDRONIC ACID [Suspect]
     Indication: OSTEOPOROSIS
     Dosage: 5 MG, UNK
     Route: 042
     Dates: start: 20090401
  2. INSULIN [Concomitant]
     Dosage: UNK

REACTIONS (5)
  - HYPERGLYCAEMIA [None]
  - BLOOD GLUCOSE ABNORMAL [None]
  - ABASIA [None]
  - PYREXIA [None]
  - PAIN [None]
